FAERS Safety Report 9146059 (Version 1)
Quarter: 2013Q1

REPORT INFORMATION
  Report Type: Spontaneous
  Country: US (occurrence: None)
  Receive Date: 20130207
  Receipt Date: 20130207
  Transmission Date: 20140127
  Serious: Yes (Death)
  Sender: FDA-Public Use
  Company Number: 2013010211

PATIENT
  Age: 43 Year
  Sex: Female

DRUGS (1)
  1. ZOLPIDEM (ZOLPIDEM) [Suspect]
     Indication: INTENTIONAL DRUG MISUSE
     Route: 048

REACTIONS (1)
  - Drug abuse [None]
